FAERS Safety Report 8818502 (Version 9)
Quarter: 2015Q3

REPORT INFORMATION
  Report Type: Report from Study
  Country: CA (occurrence: CA)
  Receive Date: 20121001
  Receipt Date: 20150821
  Transmission Date: 20151125
  Serious: Yes (Other)
  Sender: FDA-Public Use
  Company Number: CA-ROCHE-1137512

PATIENT
  Age: 53 Year
  Sex: Female
  Weight: 99.88 kg

DRUGS (17)
  1. TEVA-HYDROCHLOROTHIAZIDE [Concomitant]
  2. ELAVIL [Concomitant]
     Active Substance: AMITRIPTYLINE HYDROCHLORIDE
  3. RITUXAN [Suspect]
     Active Substance: RITUXIMAB
     Indication: RHEUMATOID ARTHRITIS
     Dosage: LAST DOSE: 30/JUN/2014
     Route: 042
     Dates: start: 20120216
  4. SOLU-MEDROL [Concomitant]
     Active Substance: METHYLPREDNISOLONE SODIUM SUCCINATE
     Route: 042
     Dates: start: 20120216
  5. VALSARTAN. [Concomitant]
     Active Substance: VALSARTAN
  6. ROSUVASTATIN [Concomitant]
     Active Substance: ROSUVASTATIN
  7. PANTOLOC [Concomitant]
     Active Substance: PANTOPRAZOLE SODIUM
     Route: 065
  8. CELEBREX [Concomitant]
     Active Substance: CELECOXIB
  9. ATIVAN [Concomitant]
     Active Substance: LORAZEPAM
  10. TYLENOL [Concomitant]
     Active Substance: ACETAMINOPHEN
     Route: 048
     Dates: start: 20120216
  11. METHOTREXATE [Concomitant]
     Active Substance: METHOTREXATE
     Route: 058
  12. EURO-FOLIC [Concomitant]
     Route: 048
  13. LIPIDIL [Concomitant]
     Active Substance: FENOFIBRATE
  14. PREDNISONE. [Concomitant]
     Active Substance: PREDNISONE
     Route: 065
  15. CALCITE 500 + D 400 [Concomitant]
  16. BENADRYL [Concomitant]
     Active Substance: DIPHENHYDRAMINE HYDROCHLORIDE
     Route: 048
     Dates: start: 20120216
  17. APO-HYDROXYQUINE [Concomitant]
     Route: 048

REACTIONS (6)
  - Emotional disorder [Unknown]
  - Sinusitis [Recovering/Resolving]
  - Infusion related reaction [Unknown]
  - Heart rate increased [Unknown]
  - Acne [Recovering/Resolving]
  - Blood pressure increased [Unknown]

NARRATIVE: CASE EVENT DATE: 201204
